FAERS Safety Report 8489674-6 (Version None)
Quarter: 2012Q3

REPORT INFORMATION
  Report Type: 
  Country: None (occurrence: None)
  Receive Date: 20120705
  Receipt Date: 20120622
  Transmission Date: 20120928
  Serious: Yes (Hospitalization)
  Sender: FDA-Public Use
  Company Number: US-GLAXOSMITHKLINE-A0874807A

PATIENT
  Age: 64 Year
  Sex: Male
  Weight: 127.3 kg

DRUGS (6)
  1. LIPITOR [Concomitant]
  2. AVANDIA [Suspect]
     Indication: TYPE 2 DIABETES MELLITUS
     Dosage: 4MG PER DAY
     Route: 048
     Dates: start: 20010220, end: 20041221
  3. VIOXX [Concomitant]
  4. GLUCOPHAGE [Concomitant]
     Dates: end: 20041201
  5. GLUCOTROL [Concomitant]
  6. BETAPACE [Concomitant]

REACTIONS (3)
  - TRANSIENT ISCHAEMIC ATTACK [None]
  - CARDIAC FAILURE CONGESTIVE [None]
  - CEREBROVASCULAR ACCIDENT [None]
